FAERS Safety Report 9648467 (Version 1)
Quarter: 2013Q4

REPORT INFORMATION
  Report Type: Spontaneous
  Country: NA (occurrence: NA)
  Receive Date: 20131028
  Receipt Date: 20131028
  Transmission Date: 20140711
  Serious: Yes (Other)
  Sender: FDA-Public Use
  Company Number: NA-ROCHE-1293281

PATIENT
  Age: 41 Year
  Sex: Female

DRUGS (1)
  1. PEGASYS [Suspect]
     Indication: HEPATITIS B
     Route: 065

REACTIONS (3)
  - Alpha 1 foetoprotein increased [Unknown]
  - Neutropenia [Unknown]
  - Anaemia [Unknown]
